FAERS Safety Report 12663391 (Version 1)
Quarter: 2016Q3

REPORT INFORMATION
  Report Type: Report from Study
  Country: US (occurrence: US)
  Receive Date: 20160818
  Receipt Date: 20160818
  Transmission Date: 20161109
  Serious: No
  Sender: FDA-Public Use
  Company Number: US-AMGEN-USASL2016106328

PATIENT
  Age: 49 Year
  Sex: Female

DRUGS (1)
  1. ENBREL [Suspect]
     Active Substance: ETANERCEPT
     Indication: RHEUMATOID ARTHRITIS
     Dosage: UNK
     Route: 065
     Dates: start: 201510

REACTIONS (8)
  - Arthritis [Unknown]
  - Panic attack [Unknown]
  - Blood pressure abnormal [Unknown]
  - Anxiety [Unknown]
  - Intentional product misuse [Unknown]
  - Tooth disorder [Unknown]
  - Pain [Unknown]
  - Swelling [Unknown]
